FAERS Safety Report 25399618 (Version 1)
Quarter: 2025Q2

REPORT INFORMATION
  Report Type: Spontaneous
  Country: FR (occurrence: FR)
  Receive Date: 20250605
  Receipt Date: 20250605
  Transmission Date: 20250716
  Serious: Yes (Hospitalization)
  Sender: TEVA
  Company Number: None

PATIENT
  Age: 63 Year
  Sex: Female

DRUGS (9)
  1. DIAZEPAM [Suspect]
     Active Substance: DIAZEPAM
     Indication: Anxiety
     Route: 048
     Dates: start: 20240216, end: 20250201
  2. ISPAGHUL [Concomitant]
     Indication: Product used for unknown indication
     Route: 065
  3. NICARDIPINE HYDROCHLORIDE [Concomitant]
     Active Substance: NICARDIPINE HYDROCHLORIDE
     Indication: Product used for unknown indication
  4. LOXAPINE [Suspect]
     Active Substance: LOXAPINE
     Indication: Bipolar disorder
     Route: 048
     Dates: start: 20240624
  5. CORN OIL, OXIDIZED [Concomitant]
     Active Substance: CORN OIL, OXIDIZED
     Indication: Product used for unknown indication
  6. SERTRALINE [Suspect]
     Active Substance: SERTRALINE HYDROCHLORIDE
     Indication: Bipolar disorder
     Dosage: SERTRALINE HYDROCHLORIDE
     Route: 048
     Dates: start: 20240216
  7. TERALITHE [Suspect]
     Active Substance: LITHIUM CARBONATE
     Indication: Bipolar disorder
     Route: 048
     Dates: start: 20240826
  8. TRIHEXYPHENIDYL HYDROCHLORIDE [Concomitant]
     Active Substance: TRIHEXYPHENIDYL HYDROCHLORIDE
     Indication: Product used for unknown indication
  9. POLYETHYLENE GLYCOLS [Concomitant]
     Active Substance: POLYETHYLENE GLYCOLS
     Indication: Product used for unknown indication

REACTIONS (1)
  - Epilepsy [Recovered/Resolved]

NARRATIVE: CASE EVENT DATE: 20250319
